FAERS Safety Report 7973782-X (Version None)
Quarter: 2011Q4

REPORT INFORMATION
  Report Type: 
  Country: None (occurrence: None)
  Receive Date: 20111125
  Receipt Date: 20110815
  Transmission Date: 20120403
  Serious: No
  Sender: FDA-Public Use
  Company Number: PHHY2011US40423

PATIENT
  Age: 4 Year
  Sex: Male

DRUGS (4)
  1. LYSINE (LYSINE) [Concomitant]
  2. MAGIC MOUTHWASH (DIPHENHYDRAMINE HYDROCHLORIDE, HYDROCORTISONE, NYSTAT [Concomitant]
  3. CARAFATE [Concomitant]
  4. AFINITOR [Suspect]
     Indication: TUBEROUS SCLEROSIS
     Dosage: 2.5 MG, DAILY, ORAL ; 5 MG, ORAL ; 2.5 MG, DAILY, ORAL
     Route: 048
     Dates: start: 20110311

REACTIONS (4)
  - ORAL PAIN [None]
  - MOUTH INJURY [None]
  - MOUTH ULCERATION [None]
  - APHAGIA [None]
